FAERS Safety Report 5123051-0 (Version None)
Quarter: 2006Q4

REPORT INFORMATION
  Report Type: 
  Country: None (occurrence: None)
  Receive Date: 20061005
  Receipt Date: 20060927
  Transmission Date: 20070319
  Serious: Yes (Death, Life-Threatening)
  Sender: FDA-Public Use
  Company Number: 229386

PATIENT
  Age: 59 Year
  Sex: Female
  Weight: 107 kg

DRUGS (9)
  1. BEVACIZUMAB (BEVACIZUMAB) PWDR + SOLVENT, INFUSION SOLN, 100MG [Suspect]
     Indication: NON-SMALL CELL LUNG CANCER
     Dosage: 1620 MG, Q3W, INTRAVENOUS
     Route: 042
     Dates: start: 20060623, end: 20060802
  2. CARBOPLATIN [Suspect]
     Indication: NON-SMALL CELL LUNG CANCER
     Dosage: 640 MG, Q3W, INTRAVENOUS
     Route: 042
     Dates: start: 20060623, end: 20060802
  3. TAXOL [Suspect]
     Indication: NON-SMALL CELL LUNG CANCER
     Dosage: 400 MG, Q3W, INTRAVENOUS
     Route: 042
     Dates: start: 20060623, end: 20060802
  4. ALLOPURINOL [Concomitant]
  5. SYNTHROID [Concomitant]
  6. WELLBUTRIN XL [Concomitant]
  7. FERROUS GLUCONATE (FERROUS GLUCONATE) [Concomitant]
  8. PROTONIX [Concomitant]
  9. ALEVE [Concomitant]

REACTIONS (5)
  - CARDIO-RESPIRATORY ARREST [None]
  - DRUG INEFFECTIVE [None]
  - MOUTH HAEMORRHAGE [None]
  - PHARYNGOLARYNGEAL PAIN [None]
  - PULMONARY HAEMORRHAGE [None]
